FAERS Safety Report 10399867 (Version 2)
Quarter: 2014Q3

REPORT INFORMATION
  Report Type: Spontaneous
  Country: CA (occurrence: CA)
  Receive Date: 20140821
  Receipt Date: 20140918
  Transmission Date: 20150326
  Serious: Yes (Other)
  Sender: FDA-Public Use
  Company Number: CA-GLAXOSMITHKLINE-A1084794A

PATIENT
  Sex: Female
  Weight: 63.6 kg

DRUGS (18)
  1. SODIUM ETIDRONATE + CALCIUM CARBONATE [Concomitant]
  2. BACLOFEN. [Concomitant]
     Active Substance: BACLOFEN
     Dosage: 10MG PER DAY
  3. LENOLTEC [Concomitant]
     Dosage: 30MG AS REQUIRED
  4. SALBUTAMOL [Concomitant]
     Active Substance: ALBUTEROL
  5. FLOVENT [Suspect]
     Active Substance: FLUTICASONE PROPIONATE
     Indication: PRODUCT USED FOR UNKNOWN INDICATION
     Route: 065
  6. INSULIN [Concomitant]
     Active Substance: INSULIN NOS
  7. NAPROXEN. [Concomitant]
     Active Substance: NAPROXEN
     Dosage: 500MG TWICE PER DAY
  8. ADVAIR HFA [Suspect]
     Active Substance: FLUTICASONE PROPIONATE\SALMETEROL XINAFOATE
     Indication: CHRONIC OBSTRUCTIVE PULMONARY DISEASE
     Dosage: 1PUFF TWICE PER DAY
     Route: 055
  9. SPIRIVA [Concomitant]
     Active Substance: TIOTROPIUM BROMIDE MONOHYDRATE
  10. CHOLECALCIFEROL [Concomitant]
     Active Substance: CHOLECALCIFEROL
  11. CEPHALEX [Concomitant]
  12. OXYCONTIN [Concomitant]
     Active Substance: OXYCODONE HYDROCHLORIDE
  13. ARTHROTEC [Concomitant]
     Active Substance: DICLOFENAC SODIUM\MISOPROSTOL
     Dosage: 200MG PER DAY
  14. ELTROXIN [Concomitant]
     Active Substance: LEVOTHYROXINE
     Dosage: .15MG PER DAY
  15. SERTRALINE [Concomitant]
     Active Substance: SERTRALINE HYDROCHLORIDE
     Dosage: 50MG TWICE PER DAY
  16. AZITHROMYCINE [Concomitant]
     Active Substance: AZITHROMYCIN DIHYDRATE
     Dosage: 250MG PER DAY
  17. ALENDRONATE [Concomitant]
     Active Substance: ALENDRONATE SODIUM
  18. AVELOX [Concomitant]
     Active Substance: MOXIFLOXACIN HYDROCHLORIDE

REACTIONS (7)
  - Joint injury [Unknown]
  - Pneumonia [Unknown]
  - Rash [Recovering/Resolving]
  - Burning sensation [Not Recovered/Not Resolved]
  - Gait disturbance [Not Recovered/Not Resolved]
  - Facial pain [Not Recovered/Not Resolved]
  - Fall [Unknown]

NARRATIVE: CASE EVENT DATE: 2011
